FAERS Safety Report 7072671-5 (Version None)
Quarter: 2010Q4

REPORT INFORMATION
  Report Type: 
  Country: None (occurrence: None)
  Receive Date: 20101029
  Receipt Date: 20100226
  Transmission Date: 20110411
  Serious: No
  Sender: FDA-Public Use
  Company Number: A0847029A

PATIENT
  Age: 64 Year
  Sex: Female

DRUGS (7)
  1. ADVAIR DISKUS 100/50 [Suspect]
     Indication: ASTHMA
     Dosage: 1PUFF TWICE PER DAY
     Route: 055
     Dates: start: 20040101
  2. TOPICAL VITAMIN E [Concomitant]
  3. LANOLIN [Concomitant]
  4. NEXIUM [Concomitant]
  5. CELEBREX [Concomitant]
  6. THYROID MEDICATION [Concomitant]
  7. VITAMIN D [Concomitant]

REACTIONS (2)
  - PRURITUS [None]
  - RASH [None]
